FAERS Safety Report 5999375-1 (Version None)
Quarter: 2008Q4

REPORT INFORMATION
  Report Type: 
  Country: None (occurrence: None)
  Receive Date: 20081215
  Receipt Date: 20080801
  Transmission Date: 20090506
  Serious: No
  Sender: FDA-Public Use
  Company Number: US-AMGEN-KDL295983

PATIENT
  Sex: Male
  Weight: 103.5 kg

DRUGS (3)
  1. ENBREL [Suspect]
     Indication: PSORIASIS
     Route: 058
     Dates: start: 20061130
  2. AVAPRO [Concomitant]
  3. AVACORE [Concomitant]

REACTIONS (1)
  - INGUINAL HERNIA [None]
